FAERS Safety Report 16414380 (Version 1)
Quarter: 2019Q3

REPORT INFORMATION
  Report Type: Spontaneous
  Country: US (occurrence: US)
  Receive Date: 20190610
  Receipt Date: 20190610
  Transmission Date: 20191004
  Serious: Yes (Death)
  Sender: FDA-Public Use
  Company Number: None

PATIENT
  Age: 69 Year
  Sex: Male

DRUGS (7)
  1. AMLODIPINE [Concomitant]
     Active Substance: AMLODIPINE BESYLATE
  2. FINASTERIDE. [Concomitant]
     Active Substance: FINASTERIDE
  3. DRONABINOL. [Concomitant]
     Active Substance: DRONABINOL
  4. LEVETIRACETAM. [Concomitant]
     Active Substance: LEVETIRACETAM
  5. LISINOPRIL. [Concomitant]
     Active Substance: LISINOPRIL
  6. PREDNISONE. [Concomitant]
     Active Substance: PREDNISONE
  7. SIROLIMUS. [Suspect]
     Active Substance: SIROLIMUS
     Indication: LIVER TRANSPLANT
     Route: 048
     Dates: start: 20180201

REACTIONS (1)
  - Death [None]

NARRATIVE: CASE EVENT DATE: 20190607
